FAERS Safety Report 20607489 (Version 1)
Quarter: 2022Q1

REPORT INFORMATION
  Report Type: Spontaneous
  Country: CA (occurrence: None)
  Receive Date: 20220317
  Receipt Date: 20220317
  Transmission Date: 20220423
  Serious: Yes (Hospitalization)
  Sender: FDA-Public Use
  Company Number: CA-ROCHE-3048281

PATIENT
  Age: 81 Year
  Sex: Male

DRUGS (28)
  1. ACTEMRA [Suspect]
     Active Substance: TOCILIZUMAB
     Indication: Rheumatoid arthritis
     Route: 042
  2. CANDESARTAN [Suspect]
     Active Substance: CANDESARTAN
     Indication: Product used for unknown indication
     Route: 048
  3. FUROSEMIDE [Suspect]
     Active Substance: FUROSEMIDE
     Indication: Product used for unknown indication
     Route: 065
  4. NITROFURANTOIN [Suspect]
     Active Substance: NITROFURANTOIN
     Indication: Product used for unknown indication
     Route: 065
  5. RITUXAN [Suspect]
     Active Substance: RITUXIMAB
     Indication: Rheumatoid arthritis
     Route: 041
  6. ACETAMINOPHEN [Concomitant]
     Active Substance: ACETAMINOPHEN
     Route: 048
  7. APIXABAN [Concomitant]
     Active Substance: APIXABAN
  8. ASPIRIN [Concomitant]
     Active Substance: ASPIRIN
     Route: 048
  9. BENADRYL [Concomitant]
     Active Substance: DIPHENHYDRAMINE HYDROCHLORIDE
     Route: 048
  10. BETAHISTINE HYDROCHLORIDE [Concomitant]
     Active Substance: BETAHISTINE HYDROCHLORIDE
  11. BICALUTAMIDE [Concomitant]
     Active Substance: BICALUTAMIDE
  12. BISOPROLOL [Concomitant]
     Active Substance: BISOPROLOL
  13. BRILINTA [Concomitant]
     Active Substance: TICAGRELOR
  14. CLOPIDOGREL [Concomitant]
     Active Substance: CLOPIDOGREL BISULFATE
  15. EFUDEX [Concomitant]
     Active Substance: FLUOROURACIL
  16. HYDROXYCHLOROQUINE [Concomitant]
     Active Substance: HYDROXYCHLOROQUINE
  17. HYDROXYCHLOROQUINE SULFATE [Concomitant]
     Active Substance: HYDROXYCHLOROQUINE SULFATE
  18. KETOPROFEN [Concomitant]
     Active Substance: KETOPROFEN
  19. METOPROLOL [Concomitant]
     Active Substance: METOPROLOL
  20. NITROGLYCERIN [Concomitant]
     Active Substance: NITROGLYCERIN
  21. PANTOPRAZOLE MAGNESIUM [Concomitant]
     Active Substance: PANTOPRAZOLE MAGNESIUM
  22. FERRIC POLYSACCHARIDE COMPLEX [Concomitant]
     Active Substance: FERRIC POLYSACCHARIDE COMPLEX
  23. POTASSIUM [Concomitant]
     Active Substance: POTASSIUM
  24. RABEPRAZOLE [Concomitant]
     Active Substance: RABEPRAZOLE
  25. ROSUVASTATIN [Concomitant]
     Active Substance: ROSUVASTATIN
  26. ROSUVASTATIN CALCIUM [Concomitant]
     Active Substance: ROSUVASTATIN CALCIUM
  27. SULFASALAZINE [Concomitant]
     Active Substance: SULFASALAZINE
  28. ZOLADEX [Concomitant]
     Active Substance: GOSERELIN ACETATE

REACTIONS (7)
  - Atrial fibrillation [Unknown]
  - Blood urine present [Unknown]
  - Drug hypersensitivity [Unknown]
  - Fluid retention [Unknown]
  - Heart rate increased [Unknown]
  - Hypotension [Unknown]
  - Myocardial infarction [Unknown]
